FAERS Safety Report 8782291 (Version 1)
Quarter: 2012Q4

REPORT INFORMATION
  Report Type: Report from Study
  Country: US (occurrence: US)
  Receive Date: 20120913
  Receipt Date: 20120913
  Transmission Date: 20130627
  Serious: No
  Sender: FDA-Public Use
  Company Number: US-VERTEX PHARMACEUTICAL INC.-AE-2012-009737

PATIENT
  Age: 49 Year
  Sex: Female
  Weight: 68.41 kg

DRUGS (5)
  1. INCIVEK [Suspect]
     Indication: HEPATITIS C
     Route: 048
     Dates: start: 20120614
  2. RIBAVIRIN [Concomitant]
     Indication: HEPATITIS C
     Route: 048
     Dates: start: 20120614
  3. PEGASYS [Concomitant]
     Indication: HEPATITIS C
     Route: 058
     Dates: start: 20120614
  4. INSULIN [Concomitant]
     Indication: DIABETES MELLITUS
  5. DIABETIC MED [Concomitant]
     Indication: DIABETES MELLITUS
     Route: 048

REACTIONS (4)
  - Headache [Not Recovered/Not Resolved]
  - Cheilitis [Not Recovered/Not Resolved]
  - Dry mouth [Not Recovered/Not Resolved]
  - Rash erythematous [Not Recovered/Not Resolved]
